FAERS Safety Report 14009779 (Version 1)
Quarter: 2017Q3

REPORT INFORMATION
  Report Type: Report from Study
  Country: BR (occurrence: BR)
  Receive Date: 20170925
  Receipt Date: 20170925
  Transmission Date: 20171128
  Serious: Yes (Life-Threatening, Hospitalization)
  Sender: FDA-Public Use
  Company Number: PHHY2017BR140438

PATIENT
  Sex: Female
  Weight: 76 kg

DRUGS (1)
  1. DIOVAN [Suspect]
     Active Substance: VALSARTAN
     Indication: HYPERTENSION
     Dosage: 0.5 DF (320 MG), QD
     Route: 048
     Dates: end: 2016

REACTIONS (5)
  - Malaise [Recovering/Resolving]
  - Pneumonia [Recovering/Resolving]
  - Feeling abnormal [Unknown]
  - Memory impairment [Recovering/Resolving]
  - Wrong technique in product usage process [Unknown]
